FAERS Safety Report 14738237 (Version 1)
Quarter: 2018Q2

REPORT INFORMATION
  Report Type: Spontaneous
  Country: JP (occurrence: JP)
  Receive Date: 20180409
  Receipt Date: 20180409
  Transmission Date: 20180711
  Serious: Yes (Hospitalization)
  Sender: FDA-Public Use
  Company Number: GXJP2018JP000839

PATIENT
  Age: 85 Year
  Sex: Male

DRUGS (2)
  1. GLIMEPIRIDE. [Suspect]
     Active Substance: GLIMEPIRIDE
     Indication: DIABETES MELLITUS
     Dosage: 3 MG, UNK, FROM 6 YEARS AGO
     Route: 065
  2. LEVOFLOXACIN TABLET [Suspect]
     Active Substance: LEVOFLOXACIN
     Indication: BRONCHITIS
     Dosage: 250 MG, UNK, ON A CERTAIN DAY IN JUNE
     Route: 048

REACTIONS (2)
  - Altered state of consciousness [Unknown]
  - Hypoglycaemia [Recovered/Resolved]
